FAERS Safety Report 5338430-6 (Version None)
Quarter: 2007Q2

REPORT INFORMATION
  Report Type: 
  Country: None (occurrence: None)
  Receive Date: 20070405
  Receipt Date: 20061107
  Transmission Date: 20071010
  Serious: No
  Sender: FDA-Public Use
  Company Number: US200611001594

PATIENT
  Age: 70 Year
  Sex: Female

DRUGS (9)
  1. CYMBALTA [Suspect]
     Indication: ARTHRALGIA
     Dosage: 30 MG, DAILY (1/D), ORAL
     Route: 048
     Dates: start: 20061106
  2. LORAZEPAM [Concomitant]
  3. DITROPAN [Concomitant]
  4. PREMARIN [Concomitant]
  5. POTASSIUM CHLORIDE [Concomitant]
  6. TOPROL-XL [Concomitant]
  7. HYDROCHLOROTHIAZIDE [Concomitant]
  8. CALCIUM (CALCIUM) [Concomitant]
  9. VITAMINS NOS (VITAMINS NOS) [Concomitant]

REACTIONS (5)
  - BALANCE DISORDER [None]
  - DIARRHOEA [None]
  - FEELING COLD [None]
  - MALAISE [None]
  - RESTLESSNESS [None]
